FAERS Safety Report 19442504 (Version 1)
Quarter: 2021Q2

REPORT INFORMATION
  Report Type: Other
  Country: US (occurrence: US)
  Receive Date: 20210621
  Receipt Date: 20210621
  Transmission Date: 20210717
  Serious: No
  Sender: FDA-Public Use
  Company Number: US-ACORDA-ACO_168646_2021

PATIENT
  Sex: Male

DRUGS (3)
  1. INBRIJA [Suspect]
     Active Substance: LEVODOPA
     Indication: PARKINSON^S DISEASE
     Dosage: 84 MILLIGRAM, PRN (2 CAPSULES OF 42MG AS NEEDED) NOT TO EXCEED 5 DOSES A DAY
     Dates: start: 20210413
  2. INBRIJA [Suspect]
     Active Substance: LEVODOPA
     Indication: ON AND OFF PHENOMENON
  3. RYTARY [Suspect]
     Active Substance: CARBIDOPA\LEVODOPA
     Indication: PRODUCT USED FOR UNKNOWN INDICATION
     Dosage: 36.25/145MG: 2 CAPSULES UPTO 6X/DAY
     Route: 065

REACTIONS (3)
  - Device occlusion [Unknown]
  - Device temperature issue [Unknown]
  - Dyskinesia [Not Recovered/Not Resolved]
